FAERS Safety Report 9486044 (Version 2)
Quarter: 2013Q4

REPORT INFORMATION
  Report Type: Spontaneous
  Country: US (occurrence: None)
  Receive Date: 20130826
  Receipt Date: 20131001
  Transmission Date: 20140711
  Serious: Yes (Hospitalization)
  Sender: FDA-Public Use
  Company Number: SYM-2013-09539

PATIENT
  Age: 73 Year
  Sex: Female

DRUGS (1)
  1. XENAZINE (TETRABENAZINE) (25 MILLIGRAM, TABLETS) (TETRABENAZINE) [Suspect]
     Indication: HUNTINGTON^S DISEASE
     Route: 048
     Dates: start: 20101202

REACTIONS (3)
  - Fall [None]
  - Balance disorder [None]
  - Hip fracture [None]
